FAERS Safety Report 9082103 (Version 1)
Quarter: 2013Q1

REPORT INFORMATION
  Report Type: Report from Study
  Country: US (occurrence: US)
  Receive Date: 20130130
  Receipt Date: 20130130
  Transmission Date: 20140127
  Serious: No
  Sender: FDA-Public Use
  Company Number: US-ABBOTT-12P-163-0953471-00

PATIENT
  Age: 31 Year
  Sex: Male

DRUGS (4)
  1. HUMIRA 40 MG/0.8 ML PEN [Suspect]
     Indication: CROHN^S DISEASE
     Dates: start: 2010
  2. APRISO [Concomitant]
     Indication: COLITIS
     Dosage: 4 TABLETS DAILY
  3. LIBRAX [Concomitant]
     Indication: PAIN
  4. CYCLOBENZAPRINE [Concomitant]
     Indication: PAIN

REACTIONS (3)
  - Device malfunction [Recovered/Resolved]
  - Incorrect dose administered [Recovered/Resolved]
  - Injection site discolouration [Recovered/Resolved]
